FAERS Safety Report 6752073-9 (Version None)
Quarter: 2010Q2

REPORT INFORMATION
  Report Type: 
  Country: None (occurrence: None)
  Receive Date: 20100602
  Receipt Date: 20100519
  Transmission Date: 20101027
  Serious: Yes (Hospitalization, Other)
  Sender: FDA-Public Use
  Company Number: US-ELI_LILLY_AND_COMPANY-US201005006197

PATIENT
  Sex: Female

DRUGS (13)
  1. FORTEO [Suspect]
     Indication: OSTEOPOROSIS
     Dosage: 20 UG, DAILY (1/D)
  2. DICLOFENAC [Concomitant]
     Dosage: 75 MG, 2/D
  3. POTASSIUM [Concomitant]
     Dosage: 20 MEQ, DAILY (1/D)
  4. SIMVASTATIN [Concomitant]
     Dosage: 80 MG, DAILY (1/D)
  5. SERTRALINE HYDROCHLORIDE [Concomitant]
     Dosage: 50 MG, DAILY (1/D)
  6. LEVOXYL [Concomitant]
     Dosage: 0.075 MG, DAILY (1/D)
  7. FEXOFENADINE HCL [Concomitant]
     Dosage: 180 MG, DAILY (1/D)
  8. FLUOXETINE [Concomitant]
     Indication: NEUROPATHY PERIPHERAL
     Dosage: 20 MG, UNK
  9. PLAVIX [Concomitant]
     Dosage: 75 MG, DAILY (1/D)
  10. ARICEPT [Concomitant]
     Indication: MEMORY IMPAIRMENT
     Dosage: 10 MG, DAILY (1/D)
  11. NAMENDA [Concomitant]
     Dosage: 5 MG, DAILY (1/D)
  12. OMEPRAZOLE [Concomitant]
     Indication: ABDOMINAL DISCOMFORT
     Dosage: 20 MG, 2/D
  13. VITAMIN D [Concomitant]
     Dosage: 1000 IU, UNK

REACTIONS (6)
  - ARTHRALGIA [None]
  - FALL [None]
  - GAIT DISTURBANCE [None]
  - HIP FRACTURE [None]
  - HYPERSENSITIVITY [None]
  - HYPOTENSION [None]
